FAERS Safety Report 4908708-6 (Version None)
Quarter: 2006Q1

REPORT INFORMATION
  Report Type: 
  Country: None (occurrence: None)
  Receive Date: 20060210
  Receipt Date: 20051025
  Transmission Date: 20060701
  Serious: No
  Sender: FDA-Public Use
  Company Number: US-GLAXOSMITHKLINE-A0579582A

PATIENT
  Age: 61 Year
  Sex: Female

DRUGS (8)
  1. PAXIL CR [Suspect]
     Indication: DEPRESSION
     Dosage: 12.5MG PER DAY
     Route: 048
     Dates: start: 20020101
  2. DIOVAN [Concomitant]
  3. ZOCOR [Concomitant]
  4. AZMACORT [Concomitant]
  5. CLONAZEPAM [Concomitant]
  6. XANAX [Concomitant]
  7. PROTONIX [Concomitant]
  8. REGLAN [Concomitant]

REACTIONS (2)
  - CONSTIPATION [None]
  - INSOMNIA [None]
